FAERS Safety Report 5321211-7 (Version None)
Quarter: 2007Q2

REPORT INFORMATION
  Report Type: 
  Country: None (occurrence: None)
  Receive Date: 20070510
  Receipt Date: 20070430
  Transmission Date: 20071010
  Serious: Yes (Other)
  Sender: FDA-Public Use
  Company Number: US-AVENTIS-200713199US

PATIENT
  Sex: Male

DRUGS (2)
  1. LOVENOX [Suspect]
     Indication: PREOPERATIVE CARE
     Dates: start: 20070429
  2. COUMADIN [Concomitant]
     Dosage: DOSE: UNK
     Dates: end: 20070429

REACTIONS (3)
  - BLINDNESS UNILATERAL [None]
  - VISUAL ACUITY REDUCED [None]
  - VITREOUS FLOATERS [None]
